FAERS Safety Report 10692817 (Version 1)
Quarter: 2015Q1

REPORT INFORMATION
  Report Type: Spontaneous
  Country: US (occurrence: None)
  Receive Date: 20150105
  Receipt Date: 20150105
  Transmission Date: 20150720
  Serious: No
  Sender: FDA-Public Use
  Company Number: None

PATIENT
  Age: 65 Year
  Sex: Male
  Weight: 91.9 kg

DRUGS (1)
  1. MORPHINE [Suspect]
     Active Substance: MORPHINE
     Indication: PAIN
     Route: 048
     Dates: start: 20140620, end: 20140620

REACTIONS (6)
  - Feeling abnormal [None]
  - Vomiting [None]
  - Nausea [None]
  - Headache [None]
  - Sleep disorder [None]
  - Drug intolerance [None]

NARRATIVE: CASE EVENT DATE: 20140619
